FAERS Safety Report 10195955 (Version 1)
Quarter: 2014Q2

REPORT INFORMATION
  Report Type: Report from Study
  Country: MX (occurrence: MX)
  Receive Date: 20140527
  Receipt Date: 20140527
  Transmission Date: 20141212
  Serious: Yes (Other)
  Sender: FDA-Public Use
  Company Number: PHHY2014MX064060

PATIENT
  Age: 51 Year
  Sex: Female

DRUGS (2)
  1. ACLASTA [Suspect]
     Dosage: 5 MG/100ML, UNK
     Route: 042
  2. CALTRATE [Concomitant]
     Dosage: 1 UKN, DAILY
     Dates: start: 2011

REACTIONS (6)
  - Abasia [Not Recovered/Not Resolved]
  - Osteopenia [Not Recovered/Not Resolved]
  - Feeling abnormal [Not Recovered/Not Resolved]
  - Mobility decreased [Not Recovered/Not Resolved]
  - Hypophagia [Unknown]
  - Pain in extremity [Not Recovered/Not Resolved]
